FAERS Safety Report 12109895 (Version 1)
Quarter: 2016Q1

REPORT INFORMATION
  Report Type: Spontaneous
  Country: US (occurrence: None)
  Receive Date: 20160223
  Receipt Date: 20160223
  Transmission Date: 20160526
  Serious: Yes (Disabling)
  Sender: FDA-Public Use
  Company Number: None

PATIENT
  Age: 52 Year
  Sex: Male
  Weight: 106.6 kg

DRUGS (9)
  1. LEVAQUIN [Suspect]
     Active Substance: LEVOFLOXACIN
     Indication: BRONCHITIS
  2. CLARATIN [Concomitant]
  3. VENTOLIN [Concomitant]
     Active Substance: ALBUTEROL SULFATE
  4. LEVAQUIN [Suspect]
     Active Substance: LEVOFLOXACIN
     Indication: SINUSITIS
  5. LEVAQUIN [Suspect]
     Active Substance: LEVOFLOXACIN
     Indication: PNEUMONIA
  6. LEVAQUIN [Suspect]
     Active Substance: LEVOFLOXACIN
     Indication: DISEASE RECURRENCE
  7. SIMVASTATIN. [Concomitant]
     Active Substance: SIMVASTATIN
  8. MICARDIS [Concomitant]
     Active Substance: TELMISARTAN
  9. ADVAIR HFA [Concomitant]
     Active Substance: FLUTICASONE PROPIONATE\SALMETEROL XINAFOATE

REACTIONS (5)
  - Vocal cord inflammation [None]
  - Inflammation [None]
  - Dysphonia [None]
  - Swollen tongue [None]
  - Aphonia [None]

NARRATIVE: CASE EVENT DATE: 20151124
